FAERS Safety Report 6994364-2 (Version None)
Quarter: 2010Q3

REPORT INFORMATION
  Report Type: 
  Country: None (occurrence: None)
  Receive Date: 20100917
  Receipt Date: 20100909
  Transmission Date: 20110219
  Serious: Yes (Death, Other)
  Sender: FDA-Public Use
  Company Number: US-AMGEN-QUU437385

PATIENT
  Sex: Male

DRUGS (3)
  1. NPLATE [Suspect]
     Indication: IDIOPATHIC THROMBOCYTOPENIC PURPURA
     Dates: start: 20091210, end: 20100127
  2. CORTICOSTEROIDS [Concomitant]
     Dates: start: 20091119, end: 20091202
  3. WINRHO [Concomitant]

REACTIONS (5)
  - CHRONIC MYELOMONOCYTIC LEUKAEMIA [None]
  - DEATH [None]
  - DRUG INEFFECTIVE [None]
  - MYELODYSPLASTIC SYNDROME [None]
  - MYELOFIBROSIS [None]
